FAERS Safety Report 24758644 (Version 1)
Quarter: 2024Q4

REPORT INFORMATION
  Report Type: Spontaneous
  Country: US (occurrence: US)
  Receive Date: 20241220
  Receipt Date: 20241220
  Transmission Date: 20250115
  Serious: No
  Sender: AUROBINDO
  Company Number: US-AUROBINDO-AUR-APL-2023-074760

PATIENT
  Age: 11 Year
  Sex: Male

DRUGS (2)
  1. AMOXICILLIN [Suspect]
     Active Substance: AMOXICILLIN
     Indication: Sinusitis
  2. SKYTROFA [Concomitant]
     Active Substance: LONAPEGSOMATROPIN-TCGD
     Indication: Product used for unknown indication
     Dosage: 6.3 MILLIGRAM, EVERY WEEK
     Route: 058
     Dates: start: 20230619

REACTIONS (1)
  - Rash [Not Recovered/Not Resolved]

NARRATIVE: CASE EVENT DATE: 20231017
